FAERS Safety Report 8257592-4 (Version None)
Quarter: 2012Q2

REPORT INFORMATION
  Report Type: 
  Country: None (occurrence: None)
  Receive Date: 20120403
  Receipt Date: 20120328
  Transmission Date: 20120825
  Serious: Yes (Hospitalization, Other)
  Sender: FDA-Public Use
  Company Number: US-ELI_LILLY_AND_COMPANY-US201203004440

PATIENT
  Sex: Male
  Weight: 139.68 kg

DRUGS (3)
  1. BYDUREON [Suspect]
     Dosage: 2 MG, WEEKLY (1/W)
     Route: 058
  2. BYDUREON [Suspect]
     Indication: TYPE 2 DIABETES MELLITUS
     Dosage: 2 MG, WEEKLY (1/W)
     Route: 058
     Dates: start: 20120312
  3. JANUVIA [Concomitant]
     Indication: TYPE 2 DIABETES MELLITUS
     Dosage: UNK
     Dates: end: 20120301

REACTIONS (19)
  - ROAD TRAFFIC ACCIDENT [None]
  - COUGH [None]
  - BRONCHITIS [None]
  - INJECTION SITE PRURITUS [None]
  - PRESYNCOPE [None]
  - NASAL CONGESTION [None]
  - INJECTION SITE PAIN [None]
  - NASOPHARYNGITIS [None]
  - INJECTION SITE HAEMORRHAGE [None]
  - LOSS OF CONSCIOUSNESS [None]
  - HEARING IMPAIRED [None]
  - INJECTION SITE ERYTHEMA [None]
  - INJECTION SITE MASS [None]
  - OXYGEN SATURATION DECREASED [None]
  - INJECTION SITE INDURATION [None]
  - DECREASED APPETITE [None]
  - DYSPHONIA [None]
  - PAIN [None]
  - WEIGHT DECREASED [None]
